FAERS Safety Report 8732988 (Version 2)
Quarter: 2012Q4

REPORT INFORMATION
  Report Type: 
  Country: IN (occurrence: IN)
  Receive Date: 20120820
  Receipt Date: 20121002
  Transmission Date: 20130627
  Serious: Yes (Other)
  Sender: FDA-Public Use
  Company Number: IN-B.I. PHARMACEUTICALS,INC./RIDGEFIELD-2012-CS-01180IG

PATIENT
  Age: 50 Year
  Sex: Male

DRUGS (2)
  1. PRADAXA [Suspect]
     Indication: ATRIAL FIBRILLATION
     Dosage: 220 mg
     Route: 048
  2. HEPARIN [Concomitant]
     Route: 042

REACTIONS (2)
  - Transient ischaemic attack [Recovered/Resolved]
  - Cerebral artery thrombosis [Recovered/Resolved with Sequelae]
